FAERS Safety Report 7968810-1 (Version None)
Quarter: 2011Q4

REPORT INFORMATION
  Report Type: 
  Country: None (occurrence: None)
  Receive Date: 20111208
  Receipt Date: 20111128
  Transmission Date: 20120403
  Serious: Yes (Hospitalization, Other)
  Sender: FDA-Public Use
  Company Number: AUR-APL-2011-06021

PATIENT
  Age: 90 Year
  Sex: Female

DRUGS (6)
  1. LISINOPRIL [Suspect]
     Indication: PRODUCT USED FOR UNKNOWN INDICATION
     Dosage: ORAL
     Route: 048
     Dates: start: 20110101
  2. CARVEDILOL [Suspect]
     Indication: PRODUCT USED FOR UNKNOWN INDICATION
     Dosage: (25 MG), ORAL
     Route: 048
     Dates: start: 20110101
  3. METHIZOL (THIZMAZOLE) [Concomitant]
  4. HALDOL [Suspect]
     Indication: PRODUCT USED FOR UNKNOWN INDICATION
     Dosage: (2 MG), ORAL
     Route: 048
     Dates: start: 20111002, end: 20111007
  5. TORSEMIDE [Suspect]
     Indication: PRODUCT USED FOR UNKNOWN INDICATION
     Dosage: (15 MG), ORAL
     Route: 048
     Dates: start: 20110101
  6. EUNERPAN (MELPERONE HYDROCHLORIDE) [Suspect]
     Indication: PRODUCT USED FOR UNKNOWN INDICATION
     Dosage: (25 MG), ORAL
     Route: 048
     Dates: start: 20111005, end: 20111007

REACTIONS (6)
  - HEART RATE DECREASED [None]
  - SYNCOPE [None]
  - C-REACTIVE PROTEIN INCREASED [None]
  - INFECTION [None]
  - BLOOD PRESSURE DECREASED [None]
  - WHITE BLOOD CELL COUNT INCREASED [None]
